FAERS Safety Report 10181052 (Version 1)
Quarter: 2014Q2

REPORT INFORMATION
  Report Type: Spontaneous
  Country: US (occurrence: US)
  Receive Date: 20140519
  Receipt Date: 20140519
  Transmission Date: 20141212
  Serious: No
  Sender: FDA-Public Use
  Company Number: US-AMGEN INC.-USASP2014022334

PATIENT
  Age: 89 Year
  Sex: Male

DRUGS (3)
  1. PROLIA [Suspect]
     Indication: OSTEOPOROSIS
     Dosage: UNK
     Route: 065
     Dates: start: 201309
  2. HYDROCODONE [Concomitant]
     Dosage: UNK UNK, BID
  3. VOLTAREN                           /00372301/ [Concomitant]

REACTIONS (7)
  - Pain [Recovering/Resolving]
  - Influenza like illness [Recovering/Resolving]
  - Nasopharyngitis [Recovering/Resolving]
  - Bone pain [Recovering/Resolving]
  - Fatigue [Recovering/Resolving]
  - Suffocation feeling [Recovering/Resolving]
  - Dyspnoea [Recovering/Resolving]
